FAERS Safety Report 15573619 (Version 4)
Quarter: 2023Q2

REPORT INFORMATION
  Report Type: Spontaneous
  Country: US (occurrence: None)
  Receive Date: 20181101
  Receipt Date: 20230509
  Transmission Date: 20230722
  Serious: Yes (Hospitalization, Other)
  Sender: FDA-Public Use
  Company Number: US-ROCHE-2205750

PATIENT
  Sex: Female
  Weight: 3.56 kg

DRUGS (1)
  1. OCREVUS [Suspect]
     Active Substance: OCRELIZUMAB
     Indication: Product used for unknown indication
     Route: 064

REACTIONS (7)
  - Hypotonia neonatal [Unknown]
  - Neonatal respiratory distress [Unknown]
  - Shoulder dystocia [Recovered/Resolved]
  - Apgar score low [Unknown]
  - Cerebrovascular accident [Recovered/Resolved]
  - Polydactyly [Unknown]
  - Foetal exposure during pregnancy [Unknown]
